FAERS Safety Report 7105783-8 (Version None)
Quarter: 2010Q4

REPORT INFORMATION
  Report Type: 
  Country: None (occurrence: None)
  Receive Date: 20101116
  Receipt Date: 20101104
  Transmission Date: 20110411
  Serious: No
  Sender: FDA-Public Use
  Company Number: US-B.I. PHARMACEUTICALS,INC./RIDGEFIELD-2010-BP-11489BP

PATIENT
  Sex: Male

DRUGS (14)
  1. SPIRIVA [Suspect]
     Indication: CHRONIC OBSTRUCTIVE PULMONARY DISEASE
     Dosage: 18 MCG
     Route: 055
     Dates: start: 20100101
  2. WARFARIN [Concomitant]
     Indication: CARDIAC DISORDER
     Dosage: 2MG ALTERNATING WITH 1 1/2
  3. AMIODARONE HCL [Concomitant]
     Indication: CARDIAC DISORDER
     Dosage: 200 MG
  4. METOPROLOL [Concomitant]
     Indication: CARDIAC DISORDER
     Dosage: 25MG TMYL, ONE TAB A DAY
  5. KLOR-CON [Concomitant]
     Indication: CARDIAC DISORDER
     Dosage: 40 MEQ
  6. FUROSEMIDE [Concomitant]
     Indication: CARDIAC DISORDER
     Dosage: 40 MG
  7. ASPIRIN [Concomitant]
     Indication: CARDIAC DISORDER
     Dosage: 81 MG
  8. DIOVAN [Concomitant]
     Indication: CARDIAC DISORDER
     Dosage: 80 MG
  9. CLONOPIN [Concomitant]
     Indication: ANXIETY
     Dosage: 0.5MG, 1/2 3 TIMES A DAY
  10. FINASTERIDE [Concomitant]
     Indication: BENIGN PROSTATIC HYPERPLASIA
     Dosage: 5 MG
  11. TAMSULOSIN [Concomitant]
     Indication: BENIGN PROSTATIC HYPERPLASIA
     Dosage: 4 MG
  12. LIPITOR [Concomitant]
     Indication: BLOOD CHOLESTEROL INCREASED
     Dosage: 20 MG
  13. GEMFIBROZIL [Concomitant]
     Dosage: 1200 MG
  14. XOPENEX [Concomitant]
     Dosage: 2 PUFFS EVERY 4-8 HOURS AS NEEDED
     Route: 055

REACTIONS (3)
  - DRUG INEFFECTIVE [None]
  - DYSPHONIA [None]
  - DYSPNOEA [None]
